FAERS Safety Report 26050637 (Version 3)
Quarter: 2025Q4

REPORT INFORMATION
  Report Type: Report from Study
  Country: US (occurrence: US)
  Receive Date: 20251116
  Receipt Date: 20251216
  Transmission Date: 20260118
  Serious: Yes (Hospitalization)
  Sender: ABBVIE
  Company Number: US-ABBVIE-6544855

PATIENT
  Age: 85 Year
  Sex: Female

DRUGS (1)
  1. RINVOQ [Suspect]
     Active Substance: UPADACITINIB
     Indication: Rheumatoid arthritis
     Dosage: FORM STRENGTH 15MG?DRUG END DATE 2025
     Route: 048
     Dates: start: 20250517, end: 2025

REACTIONS (4)
  - Tremor [Recovered/Resolved]
  - Therapeutic product effect incomplete [Unknown]
  - Urinary tract infection [Unknown]
  - Pain [Recovered/Resolved]

NARRATIVE: CASE EVENT DATE: 20250101
